FAERS Safety Report 7259086-1 (Version None)
Quarter: 2011Q1

REPORT INFORMATION
  Report Type: 
  Country: None (occurrence: None)
  Receive Date: 20110129
  Receipt Date: 20100810
  Transmission Date: 20110831
  Serious: No
  Sender: FDA-Public Use
  Company Number: US-ABBOTT-10P-163-0663511-00

PATIENT
  Sex: Male

DRUGS (5)
  1. HUMIRA [Suspect]
     Indication: PSORIASIS
     Dosage: 80 MG LOADING DOSE
     Route: 058
     Dates: start: 20100707, end: 20100707
  2. HUMIRA [Suspect]
     Dosage: 40 MG DOSE ON DAY 22
     Route: 058
     Dates: start: 20100806, end: 20100806
  3. HUMIRA [Suspect]
     Route: 058
  4. PERCOCET [Concomitant]
     Indication: PAIN
  5. HUMIRA [Suspect]
     Dosage: 40 MG LOADING DOSE
     Route: 058
     Dates: start: 20100714, end: 20100714

REACTIONS (1)
  - INAPPROPRIATE SCHEDULE OF DRUG ADMINISTRATION [None]
